FAERS Safety Report 13549193 (Version 1)
Quarter: 2017Q2

REPORT INFORMATION
  Report Type: Spontaneous
  Country: US (occurrence: US)
  Receive Date: 20170515
  Receipt Date: 20170515
  Transmission Date: 20170830
  Serious: Yes (Life-Threatening, Hospitalization)
  Sender: FDA-Public Use
  Company Number: None

PATIENT
  Age: 72 Year
  Sex: Female
  Weight: 87.75 kg

DRUGS (2)
  1. MINOCYCLINE HCL.CAP 50 MG [Suspect]
     Active Substance: MINOCYCLINE HYDROCHLORIDE
     Indication: ROSACEA
     Route: 048
     Dates: start: 20061116, end: 20161026
  2. LEVENTHYROXINE [Concomitant]

REACTIONS (4)
  - Pruritus [None]
  - Malaise [None]
  - Papillary thyroid cancer [None]
  - Goitre [None]

NARRATIVE: CASE EVENT DATE: 20170222
